FAERS Safety Report 6870812-3 (Version None)
Quarter: 2010Q3

REPORT INFORMATION
  Report Type: 
  Country: None (occurrence: None)
  Receive Date: 20100723
  Receipt Date: 20100712
  Transmission Date: 20110219
  Serious: Yes (Other)
  Sender: FDA-Public Use
  Company Number: CA-JNJFOC-20100704408

PATIENT
  Sex: Female
  Weight: 66.68 kg

DRUGS (11)
  1. REMICADE [Suspect]
     Indication: COLITIS ULCERATIVE
     Route: 042
  2. LORAZEPAM [Concomitant]
  3. SYNTHROID [Concomitant]
     Route: 048
  4. ASAPHEN [Concomitant]
     Route: 048
  5. PANTOPRAZOLE [Concomitant]
     Route: 048
  6. AZATHIOPRINE [Concomitant]
  7. PREDNISONE TAB [Concomitant]
     Route: 048
  8. MESALAMINE [Concomitant]
  9. SIMVASTATIN [Concomitant]
     Route: 048
  10. FLOVENT [Concomitant]
  11. ALBUTEROL [Concomitant]

REACTIONS (5)
  - HEADACHE [None]
  - INFUSION RELATED REACTION [None]
  - NAIL DISCOLOURATION [None]
  - NAUSEA [None]
  - VISION BLURRED [None]
